FAERS Safety Report 8803243 (Version 2)
Quarter: 2012Q4

REPORT INFORMATION
  Report Type: 
  Country: IT (occurrence: IT)
  Receive Date: 20120924
  Receipt Date: 20121003
  Transmission Date: 20130627
  Serious: Yes (Hospitalization)
  Sender: FDA-Public Use
  Company Number: IT-PFIZER INC-2012234565

PATIENT
  Age: 32 Year
  Sex: Male

DRUGS (1)
  1. XANAX [Suspect]
     Indication: SELF INJURIOUS BEHAVIOUR
     Dosage: 4.5 g, single
     Route: 048
     Dates: start: 20120911, end: 20120911

REACTIONS (2)
  - Intentional overdose [Recovered/Resolved]
  - Sopor [Recovered/Resolved]
